FAERS Safety Report 16046686 (Version 1)
Quarter: 2019Q1

REPORT INFORMATION
  Report Type: Other
  Country: HU (occurrence: HU)
  Receive Date: 20190307
  Receipt Date: 20190307
  Transmission Date: 20190418
  Serious: Yes (Hospitalization, Other)
  Sender: FDA-Public Use
  Company Number: HU-APOTEX-2019AP008877

PATIENT
  Age: 23 Year
  Sex: Female

DRUGS (15)
  1. AZATHIOPRINE. [Concomitant]
     Active Substance: AZATHIOPRINE
     Indication: ENCEPHALITIS AUTOIMMUNE
     Dosage: UNK
     Route: 065
     Dates: start: 201501, end: 201601
  2. CLOZAPINE. [Concomitant]
     Active Substance: CLOZAPINE
     Indication: SCHIZOPHRENIA
     Dosage: UNK
     Route: 065
     Dates: start: 201411, end: 201505
  3. ARIPIPRAZOLE. [Suspect]
     Active Substance: ARIPIPRAZOLE
     Indication: PSYCHOTIC DISORDER
     Dosage: UNK
     Route: 065
  4. HALOPERIDOL. [Suspect]
     Active Substance: HALOPERIDOL
     Indication: SCHIZOAFFECTIVE DISORDER
     Dosage: UNK
     Route: 065
  5. AZATHIOPRINE. [Concomitant]
     Active Substance: AZATHIOPRINE
     Indication: IMMUNOSUPPRESSANT DRUG THERAPY
     Dosage: UNK
     Route: 065
     Dates: start: 201605
  6. ARIPIPRAZOLE. [Concomitant]
     Active Substance: ARIPIPRAZOLE
     Indication: ENCEPHALITIS AUTOIMMUNE
     Dosage: UNK
     Route: 065
     Dates: start: 2015, end: 2015
  7. HALOPERIDOL. [Suspect]
     Active Substance: HALOPERIDOL
     Indication: PSYCHOTIC DISORDER
     Route: 065
  8. AMISULPRIDE [Concomitant]
     Active Substance: AMISULPRIDE
     Indication: SCHIZOPHRENIA
     Dosage: UNK
     Route: 065
     Dates: start: 201411, end: 201412
  9. OLANZAPINE. [Suspect]
     Active Substance: OLANZAPINE
     Indication: PSYCHOMOTOR SKILLS IMPAIRED
     Dosage: UNK
     Route: 065
     Dates: start: 2014, end: 2014
  10. ARIPIPRAZOLE. [Suspect]
     Active Substance: ARIPIPRAZOLE
     Indication: PSYCHOMOTOR SKILLS IMPAIRED
     Dosage: UNK
     Route: 065
     Dates: start: 2014, end: 2014
  11. LEVOTHYROXINE SODIUM. [Concomitant]
     Active Substance: LEVOTHYROXINE SODIUM
     Indication: PRODUCT USED FOR UNKNOWN INDICATION
     Route: 065
  12. METHYLPREDNISOLONE. [Suspect]
     Active Substance: METHYLPREDNISOLONE
     Indication: ENCEPHALITIS AUTOIMMUNE
     Dosage: UNK
     Route: 065
     Dates: start: 201412, end: 201505
  13. PALIPERIDONE. [Concomitant]
     Active Substance: PALIPERIDONE
     Indication: PSYCHOMOTOR SKILLS IMPAIRED
     Dosage: UNK
     Route: 065
     Dates: start: 2014, end: 201411
  14. HALOPERIDOL. [Suspect]
     Active Substance: HALOPERIDOL
     Indication: PSYCHOTIC DISORDER
     Dosage: UNK
     Route: 065
  15. ARIPIPRAZOLE. [Suspect]
     Active Substance: ARIPIPRAZOLE
     Indication: SCHIZOAFFECTIVE DISORDER
     Dosage: UNK
     Route: 065

REACTIONS (8)
  - Amenorrhoea [Recovered/Resolved]
  - Weight increased [Recovered/Resolved]
  - Skin striae [Recovered/Resolved]
  - Face oedema [Recovered/Resolved]
  - Extrapyramidal disorder [Unknown]
  - Akathisia [Unknown]
  - Drug ineffective for unapproved indication [Not Recovered/Not Resolved]
  - Drug ineffective [Unknown]

NARRATIVE: CASE EVENT DATE: 2014
